FAERS Safety Report 4908380-5 (Version None)
Quarter: 2006Q1

REPORT INFORMATION
  Report Type: 
  Country: None (occurrence: None)
  Receive Date: 20060210
  Receipt Date: 20060126
  Transmission Date: 20060701
  Serious: Yes (Hospitalization)
  Sender: FDA-Public Use
  Company Number: CH-AVENTIS-200610845GDDC

PATIENT
  Age: 80 Year
  Sex: Female

DRUGS (11)
  1. TAVANIC [Suspect]
     Indication: PNEUMONIA
     Route: 048
     Dates: start: 20050916, end: 20050924
  2. AMARYL [Suspect]
     Route: 048
     Dates: end: 20050924
  3. AMARYL [Suspect]
     Route: 048
     Dates: end: 20050603
  4. GLUCOPHAGE [Suspect]
     Route: 048
     Dates: end: 20050924
  5. ASPIRIN [Suspect]
     Route: 048
  6. DISTRANEURIN [Concomitant]
     Dosage: DOSE: 1 DF (NOS)
     Route: 048
  7. TOREM [Concomitant]
     Route: 048
  8. DIGOXIN [Concomitant]
     Route: 048
  9. TOLVON [Concomitant]
     Route: 048
  10. BERODUAL [Concomitant]
     Dosage: DOSE: RESPIRATORY
     Route: 055
  11. PULMICORT [Concomitant]
     Dosage: DOSE: RESPIRATORY
     Route: 055

REACTIONS (7)
  - COMA [None]
  - HYPOGLYCAEMIC COMA [None]
  - MYDRIASIS [None]
  - PUPILS UNEQUAL [None]
  - RENAL FAILURE [None]
  - SOPOR [None]
  - UNRESPONSIVE TO VERBAL STIMULI [None]
